FAERS Safety Report 20101875 (Version 1)
Quarter: 2021Q4

REPORT INFORMATION
  Report Type: Spontaneous
  Country: US (occurrence: None)
  Receive Date: 20211122
  Receipt Date: 20211122
  Transmission Date: 20220303
  Serious: Yes (Other)
  Sender: FDA-Public Use
  Company Number: None

PATIENT
  Age: 54 Year
  Sex: Female
  Weight: 67.5 kg

DRUGS (1)
  1. REGEN-COV [Suspect]
     Active Substance: CASIRIVIMAB\IMDEVIMAB
     Indication: COVID-19
     Dates: start: 20210821, end: 20210821

REACTIONS (4)
  - Blood pressure increased [None]
  - Dizziness [None]
  - Memory impairment [None]
  - Paraesthesia [None]

NARRATIVE: CASE EVENT DATE: 20210908
